FAERS Safety Report 17402075 (Version 1)
Quarter: 2020Q1

REPORT INFORMATION
  Report Type: Spontaneous
  Country: US (occurrence: US)
  Receive Date: 20200211
  Receipt Date: 20200211
  Transmission Date: 20200409
  Serious: Yes (Hospitalization, Other)
  Sender: FDA-Public Use
  Company Number: US-APOTEX-2020AP007341

PATIENT
  Age: 2 Year
  Sex: Female
  Weight: 13 kg

DRUGS (15)
  1. LEVALBUTEROL                       /01419301/ [Suspect]
     Active Substance: LEVALBUTEROL
     Dosage: UNK UNK, Q.4H, INHALED
     Route: 055
  2. LEVALBUTEROL                       /01419301/ [Suspect]
     Active Substance: LEVALBUTEROL
     Dosage: UNK UNK, Q.2H., INHALED
     Route: 055
  3. FLECAINIDE [Concomitant]
     Active Substance: FLECAINIDE
     Indication: SUPRAVENTRICULAR TACHYCARDIA
     Dosage: UNK
     Route: 048
  4. METHYLPREDNISOLONE. [Concomitant]
     Active Substance: METHYLPREDNISOLONE
     Indication: PRODUCT USED FOR UNKNOWN INDICATION
     Dosage: UNK
     Route: 042
  5. ALBUTEROL. [Suspect]
     Active Substance: ALBUTEROL
     Indication: COUGH
  6. FLUTICASONE. [Concomitant]
     Active Substance: FLUTICASONE
     Indication: RHINORRHOEA
     Dosage: UNK, BID, INHALED
     Route: 055
  7. FLUTICASONE. [Concomitant]
     Active Substance: FLUTICASONE
     Indication: COUGH
  8. LEVALBUTEROL                       /01419301/ [Suspect]
     Active Substance: LEVALBUTEROL
     Indication: RHINORRHOEA
     Dosage: UNK, 2 UNKNOWN DOSE
     Route: 055
  9. DEXAMETHASONE. [Concomitant]
     Active Substance: DEXAMETHASONE
     Indication: PRODUCT USED FOR UNKNOWN INDICATION
     Dosage: 8 MG, UNK
     Route: 065
  10. ALBUTEROL. [Suspect]
     Active Substance: ALBUTEROL
     Indication: RHINORRHOEA
     Dosage: 2.5 MG, UNK, INHALED
     Route: 055
  11. LEVALBUTEROL                       /01419301/ [Suspect]
     Active Substance: LEVALBUTEROL
     Indication: COUGH
     Dosage: UNK, THIRD DOSE, INHALED
     Route: 055
  12. PREDNISONE. [Concomitant]
     Active Substance: PREDNISONE
     Indication: PRODUCT USED FOR UNKNOWN INDICATION
     Dosage: UNKNOWN
     Route: 048
  13. ALBUTEROL. [Suspect]
     Active Substance: ALBUTEROL
     Indication: ASTHMA
     Dosage: 2 DF, UNK, INHALER
     Route: 055
  14. LEVALBUTEROL                       /01419301/ [Suspect]
     Active Substance: LEVALBUTEROL
     Indication: DYSPNOEA
     Dosage: 0.63 MG, UNK, TWO DOSE OVER 1 HOUR (1.26 MG TOTAL), INHALED
     Route: 055
  15. IPRATROPIUM [Concomitant]
     Active Substance: IPRATROPIUM
     Indication: PRODUCT USED FOR UNKNOWN INDICATION
     Dosage: UNK, NEBULIZED
     Route: 065

REACTIONS (1)
  - Supraventricular tachycardia [Recovered/Resolved]
